FAERS Safety Report 10283725 (Version 2)
Quarter: 2014Q3

REPORT INFORMATION
  Report Type: Spontaneous
  Country: CA (occurrence: CA)
  Receive Date: 20140708
  Receipt Date: 20140912
  Transmission Date: 20150326
  Serious: Yes (Death, Life-Threatening, Hospitalization, Other)
  Sender: FDA-Public Use
  Company Number: CA-PFIZER INC-2014186888

PATIENT
  Age: 68 Year
  Sex: Male

DRUGS (2)
  1. INLYTA [Suspect]
     Active Substance: AXITINIB
     Indication: RENAL CELL CARCINOMA
     Dosage: 5 MG, 2X/DAY
     Route: 048
     Dates: start: 201211, end: 201406
  2. PREDNISONE. [Suspect]
     Active Substance: PREDNISONE
     Indication: SYNOVITIS
     Dosage: 20 MG, 1X/DAY
     Route: 048
     Dates: start: 2011, end: 201406

REACTIONS (5)
  - Disease progression [Fatal]
  - Abscess [Fatal]
  - Renal cell carcinoma [Fatal]
  - Osteonecrosis of jaw [Unknown]
  - Incarcerated hernia [Fatal]

NARRATIVE: CASE EVENT DATE: 201406
